FAERS Safety Report 8834217 (Version 4)
Quarter: 2013Q1

REPORT INFORMATION
  Report Type: Spontaneous
  Country: JP (occurrence: JP)
  Receive Date: 20121010
  Receipt Date: 20130315
  Transmission Date: 20140127
  Serious: Yes (Hospitalization)
  Sender: FDA-Public Use
  Company Number: JP-ROCHE-1143413

PATIENT
  Sex: Male
  Weight: 54 kg

DRUGS (3)
  1. XELODA [Suspect]
     Indication: RECTAL CANCER
     Dosage: 2 WEEKS ADNINISTRATION AND 1 WEEK REST
     Route: 048
     Dates: start: 20110920, end: 20111031
  2. XELODA [Suspect]
     Indication: RECTAL CANCER
     Dosage: 2 WEEKS ADNINISTRATION AND 1 WEEK REST
     Route: 048
     Dates: start: 20111101, end: 20111121
  3. XELODA [Suspect]
     Indication: RECTAL CANCER
     Dosage: 2 WEEKS ADNINISTRATION AND 1 WEEK REST
     Route: 048
     Dates: start: 20111122, end: 20111206

REACTIONS (2)
  - Interstitial lung disease [Recovering/Resolving]
  - Pruritus generalised [Unknown]
